FAERS Safety Report 7557360-2 (Version None)
Quarter: 2011Q2

REPORT INFORMATION
  Report Type: 
  Country: None (occurrence: None)
  Receive Date: 20110620
  Receipt Date: 20110607
  Transmission Date: 20111010
  Serious: Yes (Other)
  Sender: FDA-Public Use
  Company Number: PHHY2011DE50550

PATIENT
  Age: 75 Year
  Sex: Male

DRUGS (3)
  1. CORTISON CIBA [Concomitant]
     Dosage: UNK
  2. CHEMOTHERAPEUTICS NOS [Concomitant]
     Dosage: UNK
  3. ZOMETA [Suspect]
     Dosage: UNK
     Route: 042
     Dates: start: 20050401, end: 20070621

REACTIONS (1)
  - OSTEONECROSIS OF JAW [None]
